FAERS Safety Report 19372677 (Version 1)
Quarter: 2021Q2

REPORT INFORMATION
  Report Type: Spontaneous
  Country: US (occurrence: US)
  Receive Date: 20210603
  Receipt Date: 20210603
  Transmission Date: 20210717
  Serious: Yes (Other)
  Sender: FDA-Public Use
  Company Number: None

PATIENT
  Age: 49 Year
  Sex: Female
  Weight: 87.75 kg

DRUGS (1)
  1. TADALAFIL. [Suspect]
     Active Substance: TADALAFIL
     Indication: PULMONARY ARTERIAL HYPERTENSION
     Route: 048
     Dates: start: 20200301, end: 20210420

REACTIONS (7)
  - Bone pain [None]
  - Dyspnoea [None]
  - Palpitations [None]
  - Constipation [None]
  - Gastrointestinal hypermotility [None]
  - Myalgia [None]
  - Product substitution issue [None]
